FAERS Safety Report 15786807 (Version 2)
Quarter: 2020Q2

REPORT INFORMATION
  Report Type: Report from Study
  Country: US (occurrence: US)
  Receive Date: 20190103
  Receipt Date: 20200414
  Transmission Date: 20200713
  Serious: No
  Sender: FDA-Public Use
  Company Number: US-BAUSCH-BL-2018-035708

PATIENT
  Age: 65 Year
  Sex: Male
  Weight: 113.5 kg

DRUGS (4)
  1. RELISTOR [Suspect]
     Active Substance: METHYLNALTREXONE BROMIDE
     Indication: CONSTIPATION
     Dosage: STARTED ON AN UNKNOWN DATE A COUPLE YEARS AGO
     Route: 058
     Dates: start: 2018, end: 2019
  2. RELISTOR [Suspect]
     Active Substance: METHYLNALTREXONE BROMIDE
     Dosage: RESTARTED
     Route: 058
     Dates: start: 2019
  3. RELISTOR [Suspect]
     Active Substance: METHYLNALTREXONE BROMIDE
     Indication: CONSTIPATION
     Dosage: TOOK 2 DOSES OF THE RELISTOR, AS DIRECTED  (1 YEAR AGO)
     Route: 048
     Dates: start: 2019, end: 2019
  4. OXYCODONE [Concomitant]
     Active Substance: OXYCODONE
     Indication: PRODUCT USED FOR UNKNOWN INDICATION
     Route: 048

REACTIONS (5)
  - Inability to afford medication [Unknown]
  - Flatulence [Recovered/Resolved]
  - Device malfunction [Unknown]
  - Abdominal pain upper [Unknown]
  - Gastrointestinal disorder [Unknown]

NARRATIVE: CASE EVENT DATE: 2019
